FAERS Safety Report 24806186 (Version 3)
Quarter: 2025Q1

REPORT INFORMATION
  Report Type: Spontaneous
  Country: SI (occurrence: SI)
  Receive Date: 20250103
  Receipt Date: 20250110
  Transmission Date: 20250408
  Serious: Yes (Hospitalization)
  Sender: PFIZER
  Company Number: SI-MLMSERVICE-20241223-PI311167-00270-2

PATIENT
  Age: 78 Year
  Sex: Male
  Weight: 72 kg

DRUGS (10)
  1. METHYLPREDNISOLONE [Suspect]
     Active Substance: METHYLPREDNISOLONE
     Indication: Interstitial lung disease
     Dosage: INITIATED AT A DOSE OF 0.5 MG/KG BODY WEIGHT
     Route: 048
  2. METHYLPREDNISOLONE [Suspect]
     Active Substance: METHYLPREDNISOLONE
     Indication: Hypersensitivity pneumonitis
     Dosage: 4 MG, WEEKLY
     Route: 048
  3. METHYLPREDNISOLONE [Suspect]
     Active Substance: METHYLPREDNISOLONE
     Dosage: 8 MG, DAILY
     Route: 048
  4. METHYLPREDNISOLONE [Suspect]
     Active Substance: METHYLPREDNISOLONE
     Dosage: 4 MG, DAILY
     Route: 048
     Dates: start: 202401, end: 202403
  5. ASPIRIN [Concomitant]
     Active Substance: ASPIRIN
  6. BECLOMETASONE DIPROPIONATE/FORMOTEROL FUMARATE/GLYCOPYRRONIUM BROMIDE [Concomitant]
     Indication: Asthma
     Route: 055
  7. BISOPROLOL [Concomitant]
     Active Substance: BISOPROLOL
  8. FUROSEMIDE [Concomitant]
     Active Substance: FUROSEMIDE
  9. PANTOPRAZOLE [Concomitant]
     Active Substance: PANTOPRAZOLE
     Dosage: 40 MG, 1X/DAY
  10. ROSUVASTATIN [Concomitant]
     Active Substance: ROSUVASTATIN

REACTIONS (17)
  - Adrenocortical insufficiency acute [Recovered/Resolved]
  - Normocytic anaemia [Recovered/Resolved]
  - Hypokalaemia [Recovered/Resolved]
  - Hypoalbuminaemia [Recovered/Resolved]
  - Herpes simplex [Recovered/Resolved]
  - Oral herpes [Unknown]
  - Oesophageal candidiasis [Recovered/Resolved]
  - Helicobacter gastritis [Recovered/Resolved]
  - Cytomegalovirus enterocolitis [Recovered/Resolved]
  - Renal impairment [Recovered/Resolved]
  - Blood calcium decreased [Unknown]
  - Vitamin D decreased [Recovered/Resolved]
  - Blood fibrinogen decreased [Recovered/Resolved]
  - International normalised ratio increased [Recovered/Resolved]
  - Duodenitis [Recovered/Resolved]
  - Ileal ulcer [Recovered/Resolved]
  - Rectal ulcer [Recovered/Resolved]
